FAERS Safety Report 11315712 (Version 1)
Quarter: 2015Q3

REPORT INFORMATION
  Report Type: Spontaneous
  Country: FR (occurrence: FR)
  Receive Date: 20150728
  Receipt Date: 20150728
  Transmission Date: 20151125
  Serious: Yes (Hospitalization)
  Sender: FDA-Public Use
  Company Number: FR-PFIZER INC-2015242340

PATIENT
  Age: 12 Month
  Sex: Male
  Weight: 9.95 kg

DRUGS (1)
  1. ADVIL [Suspect]
     Active Substance: IBUPROFEN
     Indication: PYREXIA
     Dosage: 100 MG, SINGLE
     Dates: start: 20150602, end: 20150602

REACTIONS (2)
  - Toxic skin eruption [Recovering/Resolving]
  - Superinfection [Recovering/Resolving]

NARRATIVE: CASE EVENT DATE: 20150706
